FAERS Safety Report 5505184-X (Version None)
Quarter: 2007Q4

REPORT INFORMATION
  Report Type: 
  Country: None (occurrence: None)
  Receive Date: 20071102
  Receipt Date: 20071031
  Transmission Date: 20080405
  Serious: Yes (Other)
  Sender: FDA-Public Use
  Company Number: JP-BRISTOL-MYERS SQUIBB COMPANY-13966155

PATIENT
  Age: 58 Year
  Sex: Female

DRUGS (1)
  1. TAXOL [Suspect]
     Indication: METASTASES TO LIVER
     Route: 041

REACTIONS (1)
  - MYELODYSPLASTIC SYNDROME [None]
